FAERS Safety Report 18682076 (Version 1)
Quarter: 2020Q4

REPORT INFORMATION
  Report Type: Spontaneous
  Country: US (occurrence: US)
  Receive Date: 20201229
  Receipt Date: 20201229
  Transmission Date: 20210114
  Serious: No
  Sender: FDA-Public Use
  Company Number: None

PATIENT
  Age: 57 Year
  Sex: Male
  Weight: 106.5 kg

DRUGS (9)
  1. LEUCOVORIN. [Concomitant]
     Active Substance: LEUCOVORIN
  2. DEXAMETHASONE. [Concomitant]
     Active Substance: DEXAMETHASONE
  3. CAPECITABINE. [Suspect]
     Active Substance: CAPECITABINE
     Indication: RECTAL CANCER
     Route: 048
     Dates: start: 20201210
  4. ONDANSETRON [Concomitant]
     Active Substance: ONDANSETRON
  5. ELIQUIS [Concomitant]
     Active Substance: APIXABAN
  6. IMODIUM A-D [Concomitant]
     Active Substance: LOPERAMIDE HYDROCHLORIDE
  7. ONDANSETRON [Concomitant]
     Active Substance: ONDANSETRON
  8. AVASTIN [Concomitant]
     Active Substance: BEVACIZUMAB
  9. LEVOTHYROXINE. [Concomitant]
     Active Substance: LEVOTHYROXINE

REACTIONS (2)
  - Insomnia [None]
  - Initial insomnia [None]

NARRATIVE: CASE EVENT DATE: 20201214
